FAERS Safety Report 14390889 (Version 1)
Quarter: 2018Q1

REPORT INFORMATION
  Report Type: Spontaneous
  Country: MX (occurrence: MX)
  Receive Date: 20180116
  Receipt Date: 20180116
  Transmission Date: 20180509
  Serious: No
  Sender: FDA-Public Use
  Company Number: MX-LUPIN PHARMACEUTICALS INC.-2017-05821

PATIENT
  Age: 5 Month
  Sex: Male
  Weight: 8.6 kg

DRUGS (4)
  1. CEFDINIR FOR ORAL SUSPENSION [Suspect]
     Active Substance: CEFDINIR
     Indication: OTITIS MEDIA
     Dosage: UNK
     Route: 048
  2. TEMPRA [Suspect]
     Active Substance: ACETAMINOPHEN
     Indication: EAR INFECTION
     Dosage: 17 DROPS EVERY 6 HOURS
     Route: 048
     Dates: start: 20170614
  3. FERRANINA [Concomitant]
     Indication: ANAEMIA PROPHYLAXIS
     Dosage: UNK
     Route: 048
  4. CEFDINIR FOR ORAL SUSPENSION [Suspect]
     Active Substance: CEFDINIR
     Indication: PHARYNGITIS

REACTIONS (1)
  - Faeces discoloured [Recovered/Resolved]
